FAERS Safety Report 14147833 (Version 1)
Quarter: 2017Q4

REPORT INFORMATION
  Report Type: Spontaneous
  Country: US (occurrence: US)
  Receive Date: 20171031
  Receipt Date: 20171031
  Transmission Date: 20180321
  Serious: No
  Sender: FDA-Public Use
  Company Number: US-AMGEN-USASP2017163300

PATIENT
  Age: 56 Year
  Sex: Female

DRUGS (17)
  1. CLOBETASOL [Concomitant]
     Active Substance: CLOBETASOL
     Dosage: 0.05 %, UNK
  2. HYDROCODONE [Concomitant]
     Active Substance: HYDROCODONE
     Dosage: 5-325 MG, UNK
  3. GABAPENTIN. [Concomitant]
     Active Substance: GABAPENTIN
     Dosage: 800 MG, UNK
  4. NAPROXEN. [Concomitant]
     Active Substance: NAPROXEN
     Dosage: UNK
  5. TRAZODONE HYDROCHLORIDE. [Concomitant]
     Active Substance: TRAZODONE HYDROCHLORIDE
     Dosage: 150 MG, UNK
  6. ENBREL [Suspect]
     Active Substance: ETANERCEPT
     Indication: PSORIASIS
     Dosage: 50 MG, QWK
     Route: 058
     Dates: start: 201708
  7. BUSPIRONE HCL [Concomitant]
     Active Substance: BUSPIRONE HYDROCHLORIDE
     Dosage: 15 MG, UNK
  8. SERTRALINE HYDROCHLORIDE. [Concomitant]
     Active Substance: SERTRALINE HYDROCHLORIDE
     Dosage: 100 MG, UNK
  9. ROPINIROLE HCL [Concomitant]
     Active Substance: ROPINIROLE HYDROCHLORIDE
     Dosage: 0.5 MG, UNK
  10. BACLOFEN. [Concomitant]
     Active Substance: BACLOFEN
     Dosage: 10 MG, UNK
  11. LEVETIRACETAM. [Concomitant]
     Active Substance: LEVETIRACETAM
     Dosage: 500 MG, UNK
  12. NYSTATIN. [Concomitant]
     Active Substance: NYSTATIN
     Dosage: 100000 UNIT/G, UNK
  13. ERGOCALCIFEROL. [Concomitant]
     Active Substance: ERGOCALCIFEROL
     Dosage: 50000 UNIT, UNK
  14. TRAMADOL ACET [Concomitant]
     Dosage: 37.5-325 MG, UNK
  15. BUPROPION HCL TB2 [Concomitant]
     Dosage: 300 MG, UNK
  16. PRAVASTATIN SODIUM. [Concomitant]
     Active Substance: PRAVASTATIN SODIUM
     Dosage: UNK
  17. SIMVASTATIN. [Concomitant]
     Active Substance: SIMVASTATIN
     Dosage: 40 MG, UNK

REACTIONS (1)
  - Injection site vesicles [Recovered/Resolved]

NARRATIVE: CASE EVENT DATE: 2017
